FAERS Safety Report 6729857-6 (Version None)
Quarter: 2010Q2

REPORT INFORMATION
  Report Type: 
  Country: None (occurrence: None)
  Receive Date: 20100513
  Receipt Date: 20100428
  Transmission Date: 20101027
  Serious: Yes (Hospitalization)
  Sender: FDA-Public Use
  Company Number: AUR-APL-2010-01214

PATIENT
  Age: 84 Year
  Sex: Male

DRUGS (8)
  1. CIPROFLOXACIN [Suspect]
     Indication: URINARY TRACT INFECTION
     Dosage: 500MG, BID, ORAL
     Route: 048
     Dates: start: 20100422
  2. WARFARIN SODIUM [Suspect]
  3. BENDROFLUMETHIAZIDE [Concomitant]
  4. CLENIL MODULITE [Concomitant]
  5. FERROUS SULFATE TAB [Concomitant]
  6. LACTULOSE [Concomitant]
  7. SALBUTAMOL [Concomitant]
  8. SENNA [Concomitant]

REACTIONS (5)
  - CONTUSION [None]
  - DECREASED APPETITE [None]
  - DIARRHOEA [None]
  - INTERNATIONAL NORMALISED RATIO INCREASED [None]
  - WEIGHT DECREASED [None]
